FAERS Safety Report 20809484 (Version 1)
Quarter: 2022Q2

REPORT INFORMATION
  Report Type: Spontaneous
  Country: US (occurrence: None)
  Receive Date: 20220510
  Receipt Date: 20220510
  Transmission Date: 20220721
  Serious: No
  Sender: FDA-Public Use
  Company Number: None

PATIENT
  Sex: Male
  Weight: 188.3 kg

DRUGS (1)
  1. CISPLATIN [Suspect]
     Active Substance: CISPLATIN

REACTIONS (4)
  - Fatigue [None]
  - Stomatitis [None]
  - Glossodynia [None]
  - Hypophagia [None]

NARRATIVE: CASE EVENT DATE: 20210702
